FAERS Safety Report 20746994 (Version 4)
Quarter: 2022Q3

REPORT INFORMATION
  Report Type: Other
  Country: JP (occurrence: JP)
  Receive Date: 20220425
  Receipt Date: 20220923
  Transmission Date: 20221027
  Serious: Yes (Other)
  Sender: FDA-Public Use
  Company Number: JP-CHUGAI-2022011135

PATIENT
  Age: 68 Year
  Sex: Male
  Weight: 76.1 kg

DRUGS (12)
  1. ATEZOLIZUMAB [Suspect]
     Active Substance: ATEZOLIZUMAB
     Indication: Large cell lung cancer
     Dosage: 1200 MILLIGRAM
     Route: 041
     Dates: start: 20211111, end: 20220113
  2. ATEZOLIZUMAB [Suspect]
     Active Substance: ATEZOLIZUMAB
     Route: 041
     Dates: start: 20220217, end: 20220512
  3. BEVACIZUMAB [Suspect]
     Active Substance: BEVACIZUMAB
     Indication: Large cell lung cancer
     Dosage: 1110 MILLIGRAM
     Route: 041
     Dates: start: 20211111, end: 20211111
  4. BEVACIZUMAB [Suspect]
     Active Substance: BEVACIZUMAB
     Route: 041
     Dates: end: 20220512
  5. BEVACIZUMAB [Suspect]
     Active Substance: BEVACIZUMAB
     Route: 041
     Dates: start: 20211202, end: 20211202
  6. BEVACIZUMAB [Suspect]
     Active Substance: BEVACIZUMAB
     Route: 041
     Dates: start: 20211223, end: 20220113
  7. BEVACIZUMAB [Suspect]
     Active Substance: BEVACIZUMAB
     Route: 041
     Dates: start: 20220217
  8. CARBOPLATIN [Suspect]
     Active Substance: CARBOPLATIN
     Indication: Large cell lung cancer
     Dosage: 730 MILLIGRAM
     Route: 041
     Dates: start: 20211111, end: 20211111
  9. CARBOPLATIN [Suspect]
     Active Substance: CARBOPLATIN
     Route: 041
     Dates: start: 20220113, end: 20220113
  10. CARBOPLATIN [Suspect]
     Active Substance: CARBOPLATIN
     Route: 041
     Dates: start: 20211223, end: 20211223
  11. CARBOPLATIN [Suspect]
     Active Substance: CARBOPLATIN
     Route: 041
     Dates: start: 20211202, end: 20211202
  12. PACLITAXEL [Suspect]
     Active Substance: PACLITAXEL
     Indication: Large cell lung cancer
     Dosage: 320 MILLIGRAM
     Route: 041
     Dates: start: 20211111, end: 20220113

REACTIONS (1)
  - Platelet count decreased [Recovered/Resolved]

NARRATIVE: CASE EVENT DATE: 20220113
